FAERS Safety Report 7900821-4 (Version None)
Quarter: 2011Q4

REPORT INFORMATION
  Report Type: 
  Country: None (occurrence: None)
  Receive Date: 20111108
  Receipt Date: 20111108
  Transmission Date: 20120403
  Serious: Yes (Hospitalization)
  Sender: FDA-Public Use
  Company Number: None

PATIENT
  Age: 84 Year
  Sex: Female
  Weight: 74 kg

DRUGS (12)
  1. WARFARIN SODIUM [Suspect]
     Indication: ANTICOAGULANT THERAPY
     Dosage: UNKNOWN
     Route: 048
  2. LISINOPRIL [Concomitant]
     Route: 048
  3. ESCITALOPRAM [Concomitant]
     Route: 048
  4. CLONAZEPAM [Concomitant]
     Route: 048
  5. VENLAFAXINE HCL EXTENDED-RELEASE [Concomitant]
     Route: 048
  6. EZETIMIBE [Concomitant]
     Route: 048
  7. ATORVASTATIN [Concomitant]
     Route: 048
  8. METOPROLOL [Concomitant]
     Route: 048
  9. CLOPIDOGREL [Concomitant]
     Route: 048
  10. AMLODIPINE [Concomitant]
     Route: 048
  11. IBANDRONATE SODIUM [Concomitant]
     Route: 048
  12. CHOLECALCIFEROL [Concomitant]
     Route: 048

REACTIONS (5)
  - HAEMATOCHEZIA [None]
  - PNEUMONIA [None]
  - HEAD INJURY [None]
  - RENAL FAILURE ACUTE [None]
  - FALL [None]
